FAERS Safety Report 10389286 (Version 1)
Quarter: 2014Q3

REPORT INFORMATION
  Report Type: Report from Study
  Country: US (occurrence: US)
  Receive Date: 20140818
  Receipt Date: 20140818
  Transmission Date: 20150326
  Serious: Yes (Death, Other)
  Sender: FDA-Public Use
  Company Number: US-ROCHE-1447211

PATIENT

DRUGS (1)
  1. CAPECITABINE [Suspect]
     Active Substance: CAPECITABINE
     Indication: BREAST CANCER METASTATIC
     Route: 048

REACTIONS (16)
  - Nausea [Unknown]
  - Stomatitis [Unknown]
  - Neutropenia [Unknown]
  - Thrombocytopenia [Unknown]
  - Hyperbilirubinaemia [Unknown]
  - Skin hyperpigmentation [Unknown]
  - Fatigue [Unknown]
  - Pneumonia [Fatal]
  - Skin disorder [Unknown]
  - Diarrhoea [Unknown]
  - Febrile neutropenia [Unknown]
  - Infection [Unknown]
  - Palmar-plantar erythrodysaesthesia syndrome [Unknown]
  - Vomiting [Unknown]
  - Anaemia [Unknown]
  - Eye irritation [Unknown]
